FAERS Safety Report 14056471 (Version 1)
Quarter: 2017Q4

REPORT INFORMATION
  Report Type: Spontaneous
  Country: JP (occurrence: JP)
  Receive Date: 20171006
  Receipt Date: 20171006
  Transmission Date: 20180321
  Serious: Yes (Hospitalization, Other)
  Sender: FDA-Public Use
  Company Number: JP-PFIZER INC-2017422103

PATIENT
  Sex: Female

DRUGS (2)
  1. SOLU-MEDROL [Suspect]
     Active Substance: METHYLPREDNISOLONE SODIUM SUCCINATE
     Dosage: UNK
     Route: 042
     Dates: start: 20170823, end: 20170825
  2. STRONGER NEO MINOPHAGEN C [Concomitant]
     Dosage: UNK
     Route: 042
     Dates: start: 20170823, end: 20170825

REACTIONS (4)
  - Aqueous humour leakage [Unknown]
  - Intraocular pressure increased [Unknown]
  - Eye haemorrhage [Unknown]
  - Cellulitis orbital [Unknown]

NARRATIVE: CASE EVENT DATE: 20170825
